FAERS Safety Report 15523765 (Version 2)
Quarter: 2018Q4

REPORT INFORMATION
  Report Type: Spontaneous
  Country: GB (occurrence: GB)
  Receive Date: 20181019
  Receipt Date: 20181130
  Transmission Date: 20190205
  Serious: Yes (Hospitalization, Other)
  Sender: FDA-Public Use
  Company Number: GB-ASTRAZENECA-2018SF33144

PATIENT
  Age: 48 Year
  Sex: Female
  Weight: 78 kg

DRUGS (2)
  1. SYMBICORT [Suspect]
     Active Substance: BUDESONIDE\FORMOTEROL FUMARATE DIHYDRATE
     Indication: ASTHMA
     Dosage: 200/6, UNKNOWN DOSE, AS REQUIRED AS REQUIRED
     Route: 055
     Dates: start: 20180921, end: 20180922
  2. SYMBICORT [Suspect]
     Active Substance: BUDESONIDE\FORMOTEROL FUMARATE DIHYDRATE
     Indication: ASTHMA
     Dosage: 200/6, UNKNOWN DOSE AND FREQUENCY UNKNOWN
     Route: 055
     Dates: start: 20180921, end: 20180922

REACTIONS (3)
  - Dyspnoea [Recovered/Resolved]
  - Migraine with aura [Recovered/Resolved]
  - Chest discomfort [Recovered/Resolved]

NARRATIVE: CASE EVENT DATE: 201809
